FAERS Safety Report 8088874-7 (Version None)
Quarter: 2012Q1

REPORT INFORMATION
  Report Type: 
  Country: None (occurrence: None)
  Receive Date: 20120128
  Receipt Date: 20110407
  Transmission Date: 20120608
  Serious: No
  Sender: FDA-Public Use
  Company Number: US-ABBOTT-11P-163-0717331-00

PATIENT
  Age: 34 Year
  Sex: Female

DRUGS (6)
  1. VITAMIN D [Concomitant]
     Indication: PRODUCT USED FOR UNKNOWN INDICATION
  2. VITAMIN B-12 [Concomitant]
     Indication: PRODUCT USED FOR UNKNOWN INDICATION
  3. HUMIRA [Suspect]
     Indication: CROHN'S DISEASE
     Dates: start: 20110301
  4. FLAGYL [Concomitant]
     Indication: COLONIC STENOSIS
  5. AMBIEN [Concomitant]
     Indication: INSOMNIA
     Dosage: AT NIGHT
  6. PHENERGAN [Concomitant]
     Indication: NAUSEA
     Dosage: PRN

REACTIONS (2)
  - INJECTION SITE REACTION [None]
  - INJECTION SITE PAIN [None]
